FAERS Safety Report 20785313 (Version 1)
Quarter: 2022Q2

REPORT INFORMATION
  Report Type: Spontaneous
  Country: US (occurrence: None)
  Receive Date: 20220504
  Receipt Date: 20220504
  Transmission Date: 20220720
  Serious: Yes (Life-Threatening, Hospitalization, Disabling)
  Sender: FDA-Public Use
  Company Number: None

PATIENT
  Age: 64 Year
  Sex: Female
  Weight: 59.87 kg

DRUGS (2)
  1. INDOMETHACIN [Suspect]
     Active Substance: INDOMETHACIN
     Indication: Bursitis
     Dosage: FREQUENCY : DAILY;?
     Route: 048
     Dates: start: 20211122, end: 20211128
  2. VENLAFAXINE HYDROCHLORIDE [Suspect]
     Active Substance: VENLAFAXINE HYDROCHLORIDE

REACTIONS (5)
  - Amnesia [None]
  - Aphasia [None]
  - Transient ischaemic attack [None]
  - Blood pressure increased [None]
  - Compulsive shopping [None]

NARRATIVE: CASE EVENT DATE: 20211128
